FAERS Safety Report 6384587-8 (Version None)
Quarter: 2009Q4

REPORT INFORMATION
  Report Type: 
  Country: None (occurrence: None)
  Receive Date: 20091001
  Receipt Date: 20090918
  Transmission Date: 20100525
  Serious: Yes (Hospitalization)
  Sender: FDA-Public Use
  Company Number: PHHY2009MX40292

PATIENT
  Sex: Female

DRUGS (3)
  1. DIOVAN HCT [Suspect]
     Indication: HYPERTENSION
     Dosage: 1 TABLET (80/12.5MG) PER DAY
     Route: 048
     Dates: start: 20060301
  2. ASPIRIN [Concomitant]
     Indication: HYPERTENSION
  3. CONCOR [Concomitant]
     Indication: HYPERTENSION

REACTIONS (1)
  - HEART VALVE OPERATION [None]
